FAERS Safety Report 23059668 (Version 4)
Quarter: 2023Q4

REPORT INFORMATION
  Report Type: Report from Study
  Country: US (occurrence: US)
  Receive Date: 20231012
  Receipt Date: 20231116
  Transmission Date: 20240110
  Serious: No
  Sender: FDA-Public Use
  Company Number: US-BIOVITRUM-2023-US-015547

PATIENT
  Age: 63 Year
  Sex: Female

DRUGS (2)
  1. KINERET [Suspect]
     Active Substance: ANAKINRA
     Indication: Product used for unknown indication
     Dosage: QD
     Route: 058
     Dates: start: 202307
  2. KINERET [Suspect]
     Active Substance: ANAKINRA
     Dosage: QD
     Route: 058

REACTIONS (2)
  - Condition aggravated [Unknown]
  - Drug ineffective [Unknown]
